FAERS Safety Report 7880265-4 (Version None)
Quarter: 2011Q4

REPORT INFORMATION
  Report Type: 
  Country: None (occurrence: None)
  Receive Date: 20111101
  Receipt Date: 20111028
  Transmission Date: 20120403
  Serious: No
  Sender: FDA-Public Use
  Company Number: US-PFIZER INC-2011264529

PATIENT
  Sex: Female
  Weight: 45.351 kg

DRUGS (2)
  1. TAPAZOLE [Concomitant]
     Indication: HYPERTHYROIDISM
     Dosage: 5 MG, UNK
  2. IBUPROFEN (ADVIL) [Suspect]
     Indication: PAIN
     Dosage: 400 MG, EVERY SIX HOURS
     Route: 048
     Dates: start: 20111001

REACTIONS (1)
  - MUSCLE SPASMS [None]
